FAERS Safety Report 5886213-0 (Version None)
Quarter: 2008Q3

REPORT INFORMATION
  Report Type: 
  Country: None (occurrence: None)
  Receive Date: 20080917
  Receipt Date: 20080905
  Transmission Date: 20090109
  Serious: Yes (Hospitalization)
  Sender: FDA-Public Use
  Company Number: JP-ELI_LILLY_AND_COMPANY-JP200809001692

PATIENT
  Age: 50 Year
  Sex: Male

DRUGS (2)
  1. GEMZAR [Suspect]
     Indication: PANCREATIC CARCINOMA
     Dosage: 1000 MG/M2, UNK
     Route: 042
     Dates: start: 20080725, end: 20080725
  2. FUTHAN [Concomitant]
     Indication: PANCREATIC CARCINOMA
     Dosage: 2.4 MG/KG, UNK
     Route: 042
     Dates: start: 20080725, end: 20080726

REACTIONS (2)
  - DEEP VEIN THROMBOSIS [None]
  - LIVER DISORDER [None]
